FAERS Safety Report 4999350-X (Version None)
Quarter: 2006Q2

REPORT INFORMATION
  Report Type: 
  Country: None (occurrence: None)
  Receive Date: 20060511
  Receipt Date: 20060502
  Transmission Date: 20061013
  Serious: Yes (Hospitalization)
  Sender: FDA-Public Use
  Company Number: BE-JNJFOC-20060201250

PATIENT
  Age: 68 Year
  Sex: Male

DRUGS (1)
  1. SPORANOX [Suspect]
     Indication: FUNGAL INFECTION
     Route: 048

REACTIONS (2)
  - OEDEMA PERIPHERAL [None]
  - PURPURA [None]
